FAERS Safety Report 18808985 (Version 2)
Quarter: 2022Q2

REPORT INFORMATION
  Report Type: Report from Study
  Country: MX (occurrence: MX)
  Receive Date: 20210129
  Receipt Date: 20220430
  Transmission Date: 20220721
  Serious: Yes (Other)
  Sender: FDA-Public Use
  Company Number: MX-NOVARTISPH-NVSC2021MX019034

PATIENT
  Sex: Male
  Weight: 130 kg

DRUGS (2)
  1. EXFORGE HCT [Suspect]
     Active Substance: AMLODIPINE BESYLATE\HYDROCHLOROTHIAZIDE\VALSARTAN
     Indication: Hypertension
     Dosage: 1 DF, QD
     Route: 048
     Dates: start: 2012
  2. CORTISONE [Concomitant]
     Active Substance: CORTISONE
     Indication: Surgery
     Dosage: 1 DF, ONCE/SINGLE
     Route: 065
     Dates: start: 2016, end: 2016

REACTIONS (3)
  - Optic nerve injury [Unknown]
  - Blindness [Unknown]
  - Intraocular pressure test abnormal [Not Recovered/Not Resolved]

NARRATIVE: CASE EVENT DATE: 20160101
